FAERS Safety Report 14913872 (Version 1)
Quarter: 2018Q2

REPORT INFORMATION
  Report Type: Spontaneous
  Country: ES (occurrence: ES)
  Receive Date: 20180518
  Receipt Date: 20180518
  Transmission Date: 20180711
  Serious: Yes (Hospitalization, Other)
  Sender: FDA-Public Use
  Company Number: ES-ABBVIE-18P-144-2356427-00

PATIENT
  Age: 61 Year
  Sex: Female

DRUGS (1)
  1. HUMIRA [Suspect]
     Active Substance: ADALIMUMAB
     Indication: CROHN^S DISEASE
     Route: 058
     Dates: start: 201506

REACTIONS (5)
  - Acute phase reaction [Unknown]
  - Disseminated tuberculosis [Unknown]
  - Anaemia [Unknown]
  - Cholestasis [Unknown]
  - Leukopenia [Unknown]

NARRATIVE: CASE EVENT DATE: 201612
